FAERS Safety Report 11228707 (Version 1)
Quarter: 2015Q2

REPORT INFORMATION
  Report Type: Spontaneous
  Country: US (occurrence: None)
  Receive Date: 20150629
  Receipt Date: 20150629
  Transmission Date: 20150821
  Serious: No
  Sender: FDA-Public Use
  Company Number: None

PATIENT
  Age: 64 Year
  Sex: Male

DRUGS (1)
  1. SUTENT [Suspect]
     Active Substance: SUNITINIB MALATE
     Indication: URINARY TRACT CARCINOMA IN SITU
     Route: 048
     Dates: start: 20150317

REACTIONS (5)
  - Pain in extremity [None]
  - Anorectal disorder [None]
  - Penis disorder [None]
  - Oropharyngeal pain [None]
  - Sensory disturbance [None]
